FAERS Safety Report 5253631-3 (Version None)
Quarter: 2007Q1

REPORT INFORMATION
  Report Type: 
  Country: None (occurrence: None)
  Receive Date: 20061201
  Receipt Date: 20060727
  Transmission Date: 20070707
  Serious: No
  Sender: FDA-Public Use
  Company Number: 2006PV018361

PATIENT
  Sex: Male

DRUGS (1)
  1. BYETTA [Suspect]
     Indication: DIABETES MELLITUS
     Dosage: 5 MCG;QD;SC, 10 MCG;BID;SC
     Route: 058

REACTIONS (3)
  - ANOREXIA [None]
  - FEELING JITTERY [None]
  - PNEUMONIA [None]
